FAERS Safety Report 5521756-0 (Version None)
Quarter: 2007Q4

REPORT INFORMATION
  Report Type: 
  Country: None (occurrence: None)
  Receive Date: 20071120
  Receipt Date: 20071112
  Transmission Date: 20080405
  Serious: Yes (Hospitalization)
  Sender: FDA-Public Use
  Company Number: CH-ROCHE-531477

PATIENT
  Age: 70 Year
  Sex: Male
  Weight: 80 kg

DRUGS (13)
  1. TOREM [Suspect]
     Indication: DRUG USE FOR UNKNOWN INDICATION
     Route: 048
     Dates: end: 20070920
  2. ERBITUX [Interacting]
     Dosage: AS NECESSARY
     Route: 041
     Dates: start: 20070723, end: 20070906
  3. SIMVASTATIN [Concomitant]
     Indication: HYPERLIPIDAEMIA
     Dosage: DRUG NAME SIMVASIN
     Route: 048
  4. BISOPROLOL FUMARATE [Concomitant]
     Route: 048
  5. ELTROXIN [Concomitant]
     Indication: HYPOTHYROIDISM
     Route: 048
  6. STILNOX [Concomitant]
     Route: 048
     Dates: end: 20070901
  7. NORVASC [Concomitant]
     Route: 048
  8. RAMIPRIL [Concomitant]
     Route: 048
  9. NEXIUM [Concomitant]
     Route: 048
  10. DUPHALAC [Concomitant]
     Dosage: AS NECESSARY
     Route: 048
     Dates: end: 20070901
  11. ZOFRAN [Concomitant]
     Dosage: FORM: FILM COATED TABLET
     Route: 048
     Dates: end: 20070901
  12. SEROQUEL [Concomitant]
     Dosage: FORM: FILM COATED TABLET
     Route: 048
  13. MARCUMAR [Concomitant]
     Indication: ATRIAL FLUTTER
     Route: 048

REACTIONS (9)
  - DEHYDRATION [None]
  - DEPRESSED LEVEL OF CONSCIOUSNESS [None]
  - DERMATITIS [None]
  - DRUG INTERACTION [None]
  - HEPATOCELLULAR DAMAGE [None]
  - HYPOTENSION [None]
  - RADIATION MUCOSITIS [None]
  - RENAL FAILURE ACUTE [None]
  - SYSTEMIC INFLAMMATORY RESPONSE SYNDROME [None]
